FAERS Safety Report 17805772 (Version 1)
Quarter: 2020Q2

REPORT INFORMATION
  Report Type: Other
  Country: TH (occurrence: TH)
  Receive Date: 20200519
  Receipt Date: 20200519
  Transmission Date: 20200714
  Serious: Yes (Death, Other)
  Sender: FDA-Public Use
  Company Number: TH-VISTAPHARM, INC.-VER202005-000911

PATIENT
  Sex: Male

DRUGS (1)
  1. HYDROCODONE AND ACETAMINOPHEN [Suspect]
     Active Substance: ACETAMINOPHEN\HYDROCODONE
     Indication: SUICIDE ATTEMPT
     Dosage: 50 TABLETS
     Route: 048

REACTIONS (4)
  - Methaemoglobinaemia [Unknown]
  - Haemolytic anaemia [Unknown]
  - Intentional overdose [Fatal]
  - Completed suicide [Fatal]
